FAERS Safety Report 6580214-5 (Version None)
Quarter: 2010Q1

REPORT INFORMATION
  Report Type: 
  Country: None (occurrence: None)
  Receive Date: 20100212
  Receipt Date: 20100204
  Transmission Date: 20100710
  Serious: Yes (Other)
  Sender: FDA-Public Use
  Company Number: UG-B.I. PHARMACEUTICALS,INC./RIDGEFIELD-2009-BP-14675BP

PATIENT
  Age: 31 Year
  Sex: Female

DRUGS (6)
  1. VIRAMUNE [Suspect]
     Indication: HIV INFECTION
     Dosage: 400 MG
     Route: 048
     Dates: start: 20081209
  2. DIDANOSINE [Suspect]
     Indication: HIV INFECTION
     Dosage: 250 MG
     Route: 048
     Dates: start: 20070306
  3. SAQUINAVIR MESYLATE [Suspect]
     Indication: HIV INFECTION
     Route: 048
     Dates: start: 20081125, end: 20090205
  4. SAQUINAVIR MESYLATE [Suspect]
     Route: 048
     Dates: start: 20090205
  5. ALUVIA [Concomitant]
     Dates: start: 20090205
  6. ALUVIA [Concomitant]
     Dates: start: 20081125

REACTIONS (1)
  - ABORTION SPONTANEOUS [None]
